FAERS Safety Report 9144235 (Version 2)
Quarter: 2013Q2

REPORT INFORMATION
  Report Type: Spontaneous
  Country: US (occurrence: US)
  Receive Date: 20130306
  Receipt Date: 20130612
  Transmission Date: 20140414
  Serious: Yes (Hospitalization)
  Sender: FDA-Public Use
  Company Number: US-ELI_LILLY_AND_COMPANY-US201302000977

PATIENT
  Sex: Male
  Weight: 116 kg

DRUGS (8)
  1. ADCIRCA [Suspect]
     Indication: COR PULMONALE CHRONIC
     Dosage: 20 MG, QD
     Route: 048
     Dates: start: 20121004
  2. METOLAZONE [Concomitant]
  3. POTASSIUM CHLORIDE [Concomitant]
  4. BUMEX [Concomitant]
  5. SYNTHROID [Concomitant]
  6. PEPCID [Concomitant]
  7. METOPROLOL [Concomitant]
  8. ALDACTONE [Concomitant]

REACTIONS (1)
  - Melaena [Recovered/Resolved]
